FAERS Safety Report 9875103 (Version 1)
Quarter: 2014Q1

REPORT INFORMATION
  Report Type: Spontaneous
  Country: US (occurrence: US)
  Receive Date: 20140206
  Receipt Date: 20140206
  Transmission Date: 20141002
  Serious: Yes (Other)
  Sender: FDA-Public Use
  Company Number: CHPA2014US001924

PATIENT
  Sex: Female

DRUGS (3)
  1. EXCEDRIN MIGRAINE [Suspect]
     Indication: MIGRAINE
     Route: 048
  2. EXCEDRIN MIGRAINE [Suspect]
     Indication: SINUS HEADACHE
  3. EXCEDRIN MIGRAINE [Suspect]
     Indication: OFF LABEL USE

REACTIONS (3)
  - Nephrolithiasis [Recovered/Resolved]
  - Poor quality sleep [Recovered/Resolved]
  - Therapeutic response unexpected [Unknown]
